FAERS Safety Report 8574169-1 (Version None)
Quarter: 2012Q3

REPORT INFORMATION
  Report Type: 
  Country: None (occurrence: None)
  Receive Date: 20120806
  Receipt Date: 20120726
  Transmission Date: 20120928
  Serious: Yes (Hospitalization)
  Sender: FDA-Public Use
  Company Number: US-ASTRAZENECA-2011SE30700

PATIENT
  Age: 50 Year
  Sex: Female
  Weight: 45.4 kg

DRUGS (10)
  1. SEROQUEL [Suspect]
     Route: 048
  2. LAMICTAL [Concomitant]
     Indication: CONVULSION
  3. SEROQUEL [Suspect]
     Route: 048
  4. SEROQUEL [Suspect]
     Indication: BIPOLAR DISORDER
     Route: 048
  5. IBUPROPHEN [Concomitant]
  6. SEROQUEL [Suspect]
     Indication: ANXIETY
     Route: 048
  7. SEROQUEL [Suspect]
     Indication: DEPRESSION
     Route: 048
  8. BENADRYL [Concomitant]
     Indication: ANXIETY
  9. SEROQUEL [Suspect]
     Route: 048
  10. ESTROGEN [Concomitant]
     Indication: HORMONE REPLACEMENT THERAPY
     Dosage: DAILY

REACTIONS (7)
  - HICCUPS [None]
  - DRUG DOSE OMISSION [None]
  - CONFUSIONAL STATE [None]
  - MOOD SWINGS [None]
  - DEMENTIA [None]
  - WEIGHT DECREASED [None]
  - APHTHOUS STOMATITIS [None]
